FAERS Safety Report 13023540 (Version 1)
Quarter: 2016Q4

REPORT INFORMATION
  Report Type: Spontaneous
  Country: US (occurrence: US)
  Receive Date: 20161212
  Receipt Date: 20161212
  Transmission Date: 20170207
  Serious: Yes (Life-Threatening)
  Sender: FDA-Public Use
  Company Number: None

PATIENT
  Age: 52 Year
  Sex: Female
  Weight: 112.5 kg

DRUGS (12)
  1. LEVOTHYROXINE. [Suspect]
     Active Substance: LEVOTHYROXINE
     Indication: POSTOPERATIVE CARE
     Dosage: ?          OTHER STRENGTH:MCG;QUANTITY:100 TABLET(S);?
     Route: 048
     Dates: start: 20160504
  2. TUMS [Concomitant]
     Active Substance: CALCIUM CARBONATE
  3. ATENOLOL. [Concomitant]
     Active Substance: ATENOLOL
  4. ASPIRIN. [Concomitant]
     Active Substance: ASPIRIN
  5. VICODIN [Concomitant]
     Active Substance: ACETAMINOPHEN\HYDROCODONE BITARTRATE
  6. LEVOTHYROXINE. [Suspect]
     Active Substance: LEVOTHYROXINE
     Indication: HORMONE THERAPY
     Dosage: ?          OTHER STRENGTH:MCG;QUANTITY:100 TABLET(S);?
     Route: 048
     Dates: start: 20160504
  7. VITAMIN D [Concomitant]
     Active Substance: CHOLECALCIFEROL
  8. CALCIUM [Concomitant]
     Active Substance: CALCIUM
  9. LASIX [Concomitant]
     Active Substance: FUROSEMIDE
  10. MOTRIN [Concomitant]
     Active Substance: IBUPROFEN
  11. LEVOTHYROXINE. [Suspect]
     Active Substance: LEVOTHYROXINE
     Indication: THYROIDECTOMY
     Dosage: ?          OTHER STRENGTH:MCG;QUANTITY:100 TABLET(S);?
     Route: 048
     Dates: start: 20160504
  12. HCTZ [Concomitant]
     Active Substance: HYDROCHLOROTHIAZIDE

REACTIONS (6)
  - Back pain [None]
  - Musculoskeletal pain [None]
  - Chest pain [None]
  - Angina pectoris [None]
  - Adverse drug reaction [None]
  - Hyperthyroidism [None]

NARRATIVE: CASE EVENT DATE: 20160927
